FAERS Safety Report 6831467-7 (Version None)
Quarter: 2010Q3

REPORT INFORMATION
  Report Type: 
  Country: None (occurrence: None)
  Receive Date: 20100712
  Receipt Date: 20100702
  Transmission Date: 20110219
  Serious: Yes (Hospitalization)
  Sender: FDA-Public Use
  Company Number: B0653128A

PATIENT
  Sex: Male

DRUGS (7)
  1. ZELITREX [Suspect]
     Dosage: 500MG PER DAY
     Route: 048
     Dates: start: 20100402, end: 20100410
  2. BACTRIM [Suspect]
     Dosage: 4AMP THREE TIMES PER DAY
     Route: 065
     Dates: start: 20100327, end: 20100412
  3. RIFATER [Concomitant]
     Dosage: 6TAB PER DAY
     Route: 048
     Dates: start: 20100327, end: 20100403
  4. MYAMBUTOL [Concomitant]
     Dosage: 1600MG PER DAY
     Route: 042
     Dates: start: 20100327, end: 20100403
  5. SOLU-MEDROL [Concomitant]
     Dosage: 60MG TWICE PER DAY
     Route: 042
     Dates: start: 20100327
  6. NEXIUM [Concomitant]
     Dosage: 20MG PER DAY
     Route: 048
     Dates: start: 20100327, end: 20100402
  7. PENTACARINAT [Concomitant]
     Route: 065
     Dates: start: 20100412

REACTIONS (2)
  - CHOLANGITIS [None]
  - MIXED LIVER INJURY [None]
